FAERS Safety Report 8074195-5 (Version None)
Quarter: 2012Q1

REPORT INFORMATION
  Report Type: 
  Country: None (occurrence: None)
  Receive Date: 20120126
  Receipt Date: 20120120
  Transmission Date: 20120608
  Serious: Yes (Life-Threatening, Other)
  Sender: FDA-Public Use
  Company Number: IT-PFIZER INC-2011058969

PATIENT
  Age: 62 Year
  Sex: Male

DRUGS (7)
  1. RAMIPRIL [Suspect]
     Dosage: 20 MG, 1X/DAY
     Route: 048
     Dates: start: 20030101, end: 20110303
  2. ESKIM [Concomitant]
     Dosage: UNK
  3. SOTALOL HCL [Concomitant]
     Dosage: UNK
  4. ADALAT [Concomitant]
     Dosage: UNK
  5. LUVION [Concomitant]
     Dosage: UNK
  6. LASIX [Concomitant]
     Dosage: UNK
  7. ASPIRIN [Concomitant]
     Dosage: UNK

REACTIONS (6)
  - DYSPNOEA [None]
  - CARDIAC ARREST [None]
  - RESPIRATORY TRACT OEDEMA [None]
  - TONGUE OEDEMA [None]
  - LARYNGEAL OEDEMA [None]
  - LOCALISED OEDEMA [None]
